FAERS Safety Report 18301816 (Version 2)
Quarter: 2021Q2

REPORT INFORMATION
  Report Type: Spontaneous
  Country: IE (occurrence: GB)
  Receive Date: 20200923
  Receipt Date: 20210629
  Transmission Date: 20210717
  Serious: Yes (Death, Hospitalization, Other)
  Sender: FDA-Public Use
  Company Number: GB-PERRIGO-20GB013398

PATIENT
  Age: 80 Year
  Sex: Female

DRUGS (3)
  1. RANITIDINE HYDROCHLORIDE. [Suspect]
     Active Substance: RANITIDINE HYDROCHLORIDE
     Indication: CHOLELITHIASIS
     Dosage: 150 MG, BID
     Dates: start: 201812
  2. APIXABAN [Suspect]
     Active Substance: APIXABAN
     Indication: PRODUCT USED FOR UNKNOWN INDICATION
     Dosage: UNK
  3. WARFARIN [Suspect]
     Active Substance: WARFARIN
     Indication: THROMBOSIS
     Dosage: UNK

REACTIONS (9)
  - Condition aggravated [Unknown]
  - Hepatic failure [Fatal]
  - Product use in unapproved indication [Fatal]
  - Weight decreased [Unknown]
  - Intestinal obstruction [Unknown]
  - Vomiting [Unknown]
  - Cholelithiasis [Fatal]
  - Illness [Unknown]
  - Diarrhoea [Unknown]

NARRATIVE: CASE EVENT DATE: 20190506
